FAERS Safety Report 7792150-7 (Version None)
Quarter: 2011Q3

REPORT INFORMATION
  Report Type: 
  Country: None (occurrence: None)
  Receive Date: 20110929
  Receipt Date: 20110922
  Transmission Date: 20111222
  Serious: Yes (Other)
  Sender: FDA-Public Use
  Company Number: 201111246

PATIENT
  Sex: Female

DRUGS (1)
  1. LIORESAL [Suspect]
     Indication: MUSCLE SPASTICITY
     Dosage: MCG, DAILY, INTRATHECAL
     Route: 037

REACTIONS (6)
  - DEVICE DISLOCATION [None]
  - FEELING ABNORMAL [None]
  - ECONOMIC PROBLEM [None]
  - UNDERDOSE [None]
  - PAIN [None]
  - IMPLANT SITE INDURATION [None]
